FAERS Safety Report 5056471-3 (Version None)
Quarter: 2006Q2

REPORT INFORMATION
  Report Type: 
  Country: None (occurrence: None)
  Receive Date: 20060616
  Receipt Date: 20051108
  Transmission Date: 20061013
  Serious: Yes (Other)
  Sender: FDA-Public Use
  Company Number: 2005153232

PATIENT
  Sex: Female

DRUGS (2)
  1. ESTRADIOL [Suspect]
     Indication: HORMONE REPLACEMENT THERAPY
     Dates: start: 20010301
  2. CLIMARA [Suspect]
     Indication: HORMONE REPLACEMENT THERAPY
     Dates: start: 20000101, end: 20010301

REACTIONS (1)
  - ISCHAEMIC STROKE [None]
